FAERS Safety Report 5332062-1 (Version None)
Quarter: 2007Q2

REPORT INFORMATION
  Report Type: 
  Country: None (occurrence: None)
  Receive Date: 20070306
  Receipt Date: 20060103
  Transmission Date: 20071010
  Serious: Yes (Other)
  Sender: FDA-Public Use
  Company Number: A03200600054

PATIENT
  Age: 78 Year
  Sex: Female
  Weight: 83.4619 kg

DRUGS (10)
  1. PLAVIX [Suspect]
     Indication: CARDIAC OPERATION
     Dosage: 75 MG QD  - ORAL
     Route: 048
     Dates: start: 20051117, end: 20051122
  2. LISINOPRIL [Concomitant]
  3. GLIPIZIDE [Concomitant]
  4. LEVOTHYROXINE SODIUM [Concomitant]
  5. FLUVASTATIN SODIUM [Concomitant]
  6. GABAPENTIN [Concomitant]
  7. FLURAZEPAM [Concomitant]
  8. ACETYLSALICYLIC ACID SRT [Concomitant]
  9. MULTI-VITAMIN [Concomitant]
  10. CALCIUM CHLORIDE [Concomitant]

REACTIONS (7)
  - ARTHRALGIA [None]
  - EYE SWELLING [None]
  - OEDEMA MOUTH [None]
  - PHARYNGEAL OEDEMA [None]
  - RASH GENERALISED [None]
  - SENSATION OF HEAVINESS [None]
  - SWELLING FACE [None]
